FAERS Safety Report 5401199-0 (Version None)
Quarter: 2007Q3

REPORT INFORMATION
  Report Type: 
  Country: None (occurrence: None)
  Receive Date: 20070731
  Receipt Date: 20070718
  Transmission Date: 20080115
  Serious: Yes (Other)
  Sender: FDA-Public Use
  Company Number: CZ-AMGEN-US236144

PATIENT
  Sex: Female

DRUGS (1)
  1. ENBREL [Suspect]
     Indication: RHEUMATOID ARTHRITIS
     Dosage: UNKNOWN
     Route: 058
     Dates: end: 20070701

REACTIONS (4)
  - JOINT SWELLING [None]
  - PYREXIA [None]
  - TUBERCULOSIS [None]
  - TUBERCULOSIS SKIN TEST POSITIVE [None]
